FAERS Safety Report 8785966 (Version 3)
Quarter: 2013Q1

REPORT INFORMATION
  Report Type: Spontaneous
  Country: US (occurrence: US)
  Receive Date: 20120914
  Receipt Date: 20130228
  Transmission Date: 20140127
  Serious: Yes (Disabling, Other)
  Sender: FDA-Public Use
  Company Number: PHEH2012US014635

PATIENT
  Age: 53 Year
  Sex: Female
  Weight: 56.69 kg

DRUGS (18)
  1. RECLAST [Suspect]
     Indication: OSTEOPOROSIS
     Dosage: UNK UKN, UNK
     Route: 042
     Dates: start: 20120626
  2. LORATADINE [Concomitant]
     Indication: HYPERSENSITIVITY
     Dosage: 10 MG, UNK
     Route: 048
  3. ASA [Concomitant]
     Indication: SJOGREN^S SYNDROME
     Dosage: 320 MG, UNK
     Route: 048
     Dates: start: 1998
  4. PLAQUENIL [Concomitant]
     Indication: SJOGREN^S SYNDROME
     Dosage: 200 MG, UNK
     Route: 048
     Dates: start: 2006
  5. NADOLOL [Concomitant]
     Dosage: 40 MG, UNK
     Route: 048
     Dates: start: 1991
  6. TRAZODONE [Concomitant]
     Indication: SJOGREN^S SYNDROME
     Dosage: 25 MG, UNK
     Dates: start: 2006
  7. ESTRADIOL [Concomitant]
     Indication: MENOPAUSE
     Dosage: 0.5 MG, UNK
     Dates: start: 2010
  8. PROVERA [Concomitant]
     Indication: MENOPAUSE
     Dosage: 25 MG, UNK
     Route: 048
     Dates: start: 2010
  9. MEDROL [Concomitant]
     Indication: SJOGREN^S SYNDROME
     Dosage: 2 MG, UNK
     Route: 048
  10. VITAMIN C [Concomitant]
     Dosage: 500 MG, UNK
     Route: 048
     Dates: start: 2006
  11. FISH OIL [Concomitant]
     Dosage: 1000 MG, UNK
     Route: 048
     Dates: start: 2010
  12. OMEPRAZOLE [Concomitant]
     Indication: GASTROOESOPHAGEAL REFLUX DISEASE
     Dosage: 40 MG, UNK
     Route: 048
     Dates: start: 2010
  13. SYNTHROID [Concomitant]
     Indication: THYROID DISORDER
     Dosage: 88 UG, UNK
     Route: 048
     Dates: start: 2008
  14. VITAMIN E [Concomitant]
     Dosage: 400 IU, UNK
     Route: 048
     Dates: start: 2008
  15. VITAMIN D [Concomitant]
     Dosage: 50000 IU, WEEKLY
     Route: 048
  16. CALCIUM [Concomitant]
     Dosage: 600 MG, DAILY
  17. PREDNISONE [Concomitant]
     Dosage: 2 MG, UNK
  18. PROGESTERONE [Concomitant]
     Indication: MENOPAUSE
     Dosage: UNK UKN, UNK
     Dates: start: 2010

REACTIONS (7)
  - Pelvic fracture [Not Recovered/Not Resolved]
  - Arthralgia [Not Recovered/Not Resolved]
  - Pain in extremity [Not Recovered/Not Resolved]
  - Groin pain [Not Recovered/Not Resolved]
  - Stress fracture [Recovered/Resolved]
  - Malaise [Unknown]
  - Influenza like illness [Unknown]
